FAERS Safety Report 4736929-4 (Version None)
Quarter: 2005Q3

REPORT INFORMATION
  Report Type: 
  Country: None (occurrence: None)
  Receive Date: 20050808
  Receipt Date: 20050601
  Transmission Date: 20060218
  Serious: Yes (Other)
  Sender: FDA-Public Use
  Company Number: 200515043GDDC

PATIENT
  Age: 79 Year
  Sex: Female

DRUGS (13)
  1. GAVISCON [Suspect]
     Indication: DYSPEPSIA
     Dosage: DOSE: UNK
     Route: 048
     Dates: start: 20050501, end: 20050517
  2. WARFARIN SODIUM [Concomitant]
  3. CALCIUM CARBONATE [Concomitant]
     Dates: start: 20020101
  4. ROLAIDS CALCIUM RICH [Concomitant]
     Dates: start: 19850101
  5. THYROXINE SODIUM [Concomitant]
  6. VALSARTAN [Concomitant]
  7. METOPROLOL SUCCINATE [Concomitant]
  8. DIGOXIN [Concomitant]
  9. METHOTREXATE [Concomitant]
  10. MULTIVITAMINS, PLAIN [Concomitant]
  11. PREDNISONE [Concomitant]
  12. CALCIUM WITH VITAMIN D [Concomitant]
  13. ULTRACET [Concomitant]

REACTIONS (3)
  - COAGULOPATHY [None]
  - DRUG INTERACTION [None]
  - PROTHROMBIN TIME ABNORMAL [None]
